FAERS Safety Report 23123604 (Version 2)
Quarter: 2023Q4

REPORT INFORMATION
  Report Type: Spontaneous
  Country: PL (occurrence: PL)
  Receive Date: 20231030
  Receipt Date: 20231109
  Transmission Date: 20240110
  Serious: Yes (Hospitalization)
  Sender: FDA-Public Use
  Company Number: PL-NOVOPROD-1129944

PATIENT
  Age: 51 Year
  Sex: Female
  Weight: 85 kg

DRUGS (4)
  1. RYBELSUS [Suspect]
     Active Substance: SEMAGLUTIDE
     Indication: Obesity
     Dosage: 14 MG, QD
     Route: 048
     Dates: start: 20230220, end: 20230922
  2. SERTRALINE [Concomitant]
     Active Substance: SERTRALINE HYDROCHLORIDE
     Indication: Product used for unknown indication
     Dosage: 200 MG
  3. METAMIZOLE MAGNESIUM [Concomitant]
     Active Substance: METAMIZOLE MAGNESIUM
     Indication: Pain
     Dosage: UNK
  4. DROTAVERIN [DROTAVERINE] [Concomitant]
     Indication: Pain
     Dosage: UNK

REACTIONS (4)
  - Liver injury [Unknown]
  - Pancreatic injury [Unknown]
  - Cholelithiasis [Unknown]
  - Off label use [Recovered/Resolved]

NARRATIVE: CASE EVENT DATE: 20230220
